FAERS Safety Report 18516349 (Version 5)
Quarter: 2025Q3

REPORT INFORMATION
  Report Type: Spontaneous
  Country: EU (occurrence: EU)
  Receive Date: 20201118
  Receipt Date: 20250919
  Transmission Date: 20251021
  Serious: Yes (Death, Life-Threatening, Other)
  Sender: MYLAN
  Company Number: EU-002147023-NVSC2020PL285416

PATIENT
  Age: 33 Year
  Sex: Female

DRUGS (10)
  1. EVEROLIMUS [Suspect]
     Active Substance: EVEROLIMUS
     Indication: Metastatic neoplasm
  2. EVEROLIMUS [Suspect]
     Active Substance: EVEROLIMUS
     Indication: Carcinoid tumour pulmonary
  3. EVEROLIMUS [Suspect]
     Active Substance: EVEROLIMUS
     Indication: Lung neoplasm malignant
  4. CAPECITABINE [Suspect]
     Active Substance: CAPECITABINE
     Indication: Lung neoplasm malignant
     Dosage: 750 MILLIGRAM/SQ. METER, BID (750 MG/M2, CYCLIC(DAY 1-14)(18 CYCLES-20 MONTHS)
  5. CAPECITABINE [Suspect]
     Active Substance: CAPECITABINE
     Indication: Metastatic neoplasm
  6. CAPECITABINE [Suspect]
     Active Substance: CAPECITABINE
     Indication: Palliative care
  7. TEMOZOLOMIDE [Suspect]
     Active Substance: TEMOZOLOMIDE
     Indication: Metastatic neoplasm
     Dosage: 200 MILLIGRAM/SQ. METER, QD (CYCLIC(DAY 10-14, 28-DAY CYCLE)(18 CYCLES-20 MONTHS)
  8. TEMOZOLOMIDE [Suspect]
     Active Substance: TEMOZOLOMIDE
     Indication: Palliative care
  9. TEMOZOLOMIDE [Suspect]
     Active Substance: TEMOZOLOMIDE
     Indication: Metastatic carcinoid tumour
  10. TEMOZOLOMIDE [Suspect]
     Active Substance: TEMOZOLOMIDE
     Indication: Carcinoid tumour pulmonary

REACTIONS (11)
  - Metastases to bone [Fatal]
  - Metastases to liver [Fatal]
  - Metastases to breast [Fatal]
  - Anaemia [Unknown]
  - Neutropenia [Unknown]
  - Thrombocytopenia [Unknown]
  - Upper respiratory tract infection [Unknown]
  - Therapy partial responder [Unknown]
  - Infection [Unknown]
  - Off label use [Unknown]
  - Product use in unapproved indication [Unknown]

NARRATIVE: CASE EVENT DATE: 20180501
